FAERS Safety Report 9712184 (Version 2)
Quarter: 2013Q4

REPORT INFORMATION
  Report Type: Spontaneous
  Country: US (occurrence: US)
  Receive Date: 20131126
  Receipt Date: 20131126
  Transmission Date: 20140711
  Serious: Yes (Disabling)
  Sender: FDA-Public Use
  Company Number: US-GE HEALTHCARE MEDICAL DIAGNOSTICS-OSCN-PR-0909S-0432

PATIENT
  Age: 60 Year
  Sex: Male

DRUGS (11)
  1. GADOLINIUM (UNSPECIFIED) [Suspect]
     Indication: PRODUCT USED FOR UNKNOWN INDICATION
     Dates: start: 20070905, end: 20070905
  2. OPTIMARK [Suspect]
     Indication: RENAL MASS
     Dates: start: 20050630, end: 20050630
  3. MYCOPHENOLIC [Concomitant]
     Indication: TRANSPLANT REJECTION
  4. SIROLMUS [Concomitant]
     Indication: TRANSPLANT REJECTION
  5. SYNTHROID [Concomitant]
     Indication: HYPOTHYROIDISM
  6. EPOGEN [Concomitant]
     Indication: RED BLOOD CELL COUNT DECREASED
  7. IRON [Concomitant]
     Indication: PRODUCT USED FOR UNKNOWN INDICATION
  8. LABETALOL [Concomitant]
     Indication: BLOOD PRESSURE INCREASED
  9. NEPRINOL [Concomitant]
  10. PREDNISONE [Concomitant]
     Indication: PAIN
  11. PREDNISONE [Concomitant]
     Indication: SWELLING

REACTIONS (1)
  - Nephrogenic systemic fibrosis [Not Recovered/Not Resolved]
